FAERS Safety Report 13645598 (Version 2)
Quarter: 2017Q2

REPORT INFORMATION
  Report Type: Spontaneous
  Country: JP (occurrence: JP)
  Receive Date: 20170613
  Receipt Date: 20170615
  Transmission Date: 20170830
  Serious: Yes (Other)
  Sender: FDA-Public Use
  Company Number: JP-ROCHE-1949539

PATIENT
  Age: 36 Year
  Sex: Female

DRUGS (2)
  1. MERCAZOLE (JAPAN) [Suspect]
     Active Substance: METHIMAZOLE
     Indication: PRODUCT USE IN UNAPPROVED INDICATION
     Dosage: DOSAGE IS UNCERTAIN.
     Route: 065
  2. TAMIFLU [Suspect]
     Active Substance: OSELTAMIVIR PHOSPHATE
     Indication: PRODUCT USED FOR UNKNOWN INDICATION
     Route: 048
     Dates: start: 201604, end: 201604

REACTIONS (1)
  - Agranulocytosis [Unknown]
